FAERS Safety Report 7266281-4 (Version None)
Quarter: 2011Q1

REPORT INFORMATION
  Report Type: 
  Country: None (occurrence: None)
  Receive Date: 20110131
  Receipt Date: 20110121
  Transmission Date: 20110831
  Serious: Yes (Hospitalization, Other)
  Sender: FDA-Public Use
  Company Number: US-ASTRAZENECA-2010SE43720

PATIENT
  Age: 7910 Day
  Sex: Male
  Weight: 42.2 kg

DRUGS (4)
  1. ACEBUTOLOL [Concomitant]
     Indication: ANXIETY
     Route: 048
  2. HYDROXYZINE [Concomitant]
     Indication: SLEEP DISORDER
     Route: 048
  3. MELATONIN [Concomitant]
     Indication: SLEEP DISORDER
     Route: 048
  4. SEROQUEL [Suspect]
     Indication: AGITATION
     Route: 048
     Dates: end: 20101002

REACTIONS (3)
  - DYSPNOEA [None]
  - NEUROLEPTIC MALIGNANT SYNDROME [None]
  - CONVERSION DISORDER [None]
